FAERS Safety Report 17028582 (Version 1)
Quarter: 2019Q4

REPORT INFORMATION
  Report Type: Spontaneous
  Country: US (occurrence: US)
  Receive Date: 20191113
  Receipt Date: 20191113
  Transmission Date: 20200122
  Serious: No
  Sender: FDA-Public Use
  Company Number: US-JNJFOC-20191108718

PATIENT
  Sex: Female
  Weight: 47.67 kg

DRUGS (1)
  1. ZYRTEC [Suspect]
     Active Substance: CETIRIZINE HYDROCHLORIDE
     Indication: UPPER-AIRWAY COUGH SYNDROME
     Dosage: LAST USED DATE: 06/NOV/2019
     Route: 048

REACTIONS (2)
  - Accidental overdose [Unknown]
  - Product use in unapproved indication [Unknown]
